FAERS Safety Report 8018895-1 (Version None)
Quarter: 2012Q1

REPORT INFORMATION
  Report Type: 
  Country: None (occurrence: None)
  Receive Date: 20120103
  Receipt Date: 20111219
  Transmission Date: 20120608
  Serious: Yes (Life-Threatening, Hospitalization, Other)
  Sender: FDA-Public Use
  Company Number: GB-PFIZER INC-2011315711

PATIENT
  Age: 52 Year
  Sex: Male

DRUGS (9)
  1. DILTIAZEM HCL [Suspect]
     Dosage: 3900 MILLIGRAM(S);ONCE
     Route: 065
  2. RAMIPRIL [Suspect]
     Dosage: 140 MILLIGRAM(S);
     Route: 065
  3. NICORANDIL [Suspect]
     Dosage: 120 MILLIGRAM(S);
     Route: 065
  4. OMEPRAZOLE [Concomitant]
  5. CITALOPRAM [Concomitant]
  6. ISOSORBIDE MONONITRATE [Suspect]
     Dosage: 800 MILLIGRAM(S);
     Route: 065
  7. TAMSULOSIN [Concomitant]
  8. SIMVASTATIN [Concomitant]
  9. ASPIRIN [Concomitant]

REACTIONS (6)
  - HYPOTENSION [None]
  - ANURIA [None]
  - BLOOD CREATININE INCREASED [None]
  - SOMNOLENCE [None]
  - TOXICITY TO VARIOUS AGENTS [None]
  - OVERDOSE [None]
